FAERS Safety Report 25124098 (Version 1)
Quarter: 2025Q1

REPORT INFORMATION
  Report Type: Spontaneous
  Country: US (occurrence: US)
  Receive Date: 20250326
  Receipt Date: 20250326
  Transmission Date: 20250409
  Serious: No
  Sender: SANOFI AVENTIS
  Company Number: US-SA-2025SA086849

PATIENT
  Age: 12 Year
  Sex: Female

DRUGS (32)
  1. REZUROCK [Suspect]
     Active Substance: BELUMOSUDIL
     Indication: Chronic graft versus host disease
     Dosage: 200 MG, QD
     Route: 048
  2. ALBUTEROL SULFATE [Concomitant]
     Active Substance: ALBUTEROL SULFATE
  3. AMLODIPINE BESYLATE [Concomitant]
     Active Substance: AMLODIPINE BESYLATE
  4. AYGESTIN [Concomitant]
     Active Substance: NORETHINDRONE ACETATE
  5. CEPHALEXIN [Concomitant]
     Active Substance: CEPHALEXIN
  6. CIPROFLOXACIN [Concomitant]
     Active Substance: CIPROFLOXACIN
  7. DEXAMETHASONE [Concomitant]
     Active Substance: DEXAMETHASONE
  8. EPINEPHRINE [Concomitant]
     Active Substance: EPINEPHRINE
  9. FLOVENT [Concomitant]
     Active Substance: FLUTICASONE PROPIONATE
  10. FOLIC ACID [Concomitant]
     Active Substance: FOLIC ACID
  11. GRANISETRON [Concomitant]
     Active Substance: GRANISETRON
  12. HEPARIN [Concomitant]
     Active Substance: HEPARIN SODIUM
  13. ACETAMINOPHEN\HYDROCODONE [Concomitant]
     Active Substance: ACETAMINOPHEN\HYDROCODONE
  14. HYDROCORTISONE [Concomitant]
     Active Substance: HYDROCORTISONE
  15. HYDROXYZINE [Concomitant]
     Active Substance: HYDROXYZINE HYDROCHLORIDE
  16. LEVOFLOXACIN [Concomitant]
     Active Substance: LEVOFLOXACIN
  17. LORAZEPAM [Concomitant]
     Active Substance: LORAZEPAM
  18. MAGNESIUM [Concomitant]
     Active Substance: MAGNESIUM
  19. NORETHINDRONE ACETATE [Concomitant]
     Active Substance: NORETHINDRONE ACETATE
  20. NYSTATIN [Concomitant]
     Active Substance: NYSTATIN
  21. ONDANSETRON [Concomitant]
     Active Substance: ONDANSETRON
  22. OXYCODONE [Concomitant]
     Active Substance: OXYCODONE
  23. PREDNISONE [Concomitant]
     Active Substance: PREDNISONE
  24. PREVYMIS [Concomitant]
     Active Substance: LETERMOVIR
  25. RIZATRIPTAN BENZOATE [Concomitant]
     Active Substance: RIZATRIPTAN BENZOATE
  26. SINGULAIR [Concomitant]
     Active Substance: MONTELUKAST SODIUM
  27. SULFAMETHOXAZOLE\TRIMETHOPRIM [Concomitant]
     Active Substance: SULFAMETHOXAZOLE\TRIMETHOPRIM
  28. TACROLIMUS [Concomitant]
     Active Substance: TACROLIMUS
  29. TOPIRAMATE [Concomitant]
     Active Substance: TOPIRAMATE
  30. TRIAMCINOLONE ACETONIDE [Concomitant]
     Active Substance: TRIAMCINOLONE ACETONIDE
  31. VITAMIN D NOS [Concomitant]
     Active Substance: CHOLECALCIFEROL\ERGOCALCIFEROL
  32. VORICONAZOLE [Concomitant]
     Active Substance: VORICONAZOLE

REACTIONS (1)
  - Drug ineffective [Unknown]
